FAERS Safety Report 20175547 (Version 1)
Quarter: 2021Q4

REPORT INFORMATION
  Report Type: Spontaneous
  Country: TW (occurrence: TW)
  Receive Date: 20211213
  Receipt Date: 20211213
  Transmission Date: 20220303
  Serious: Yes (Other)
  Sender: FDA-Public Use
  Company Number: TW-Merck Healthcare KGaA-9284145

PATIENT
  Age: 67 Year
  Sex: Male
  Weight: 52 kg

DRUGS (16)
  1. ERBITUX [Suspect]
     Active Substance: CETUXIMAB
     Indication: Colon cancer
     Dosage: 700 MG, UNK
     Route: 041
     Dates: start: 20190513, end: 20190729
  2. ERBITUX [Suspect]
     Active Substance: CETUXIMAB
     Dosage: 500-700 MG, UNKNOWN
     Route: 041
     Dates: start: 20190829
  3. OXALIP [Concomitant]
     Indication: Colon cancer
     Dosage: 136-150MG
     Route: 041
     Dates: start: 20190316, end: 20190417
  4. OXALIP [Concomitant]
     Dosage: 130-135MG
     Route: 041
     Dates: start: 20190829, end: 20200118
  5. IRINOTECAN [Concomitant]
     Active Substance: IRINOTECAN
     Indication: Colon cancer
     Dosage: 150 MG, UNK
     Dates: start: 20180203
  6. IRINOTECAN [Concomitant]
     Active Substance: IRINOTECAN
     Dosage: 150-246MG
     Dates: start: 20180301, end: 20190212
  7. IRINOTECAN [Concomitant]
     Active Substance: IRINOTECAN
     Dosage: 225- 240MG
     Route: 041
     Dates: start: 20190513, end: 20190729
  8. FLUOROURACIL [Concomitant]
     Active Substance: FLUOROURACIL
     Indication: Colon cancer
     Dosage: 1500 MG, UNK
     Route: 041
     Dates: start: 20180203
  9. FLUOROURACIL [Concomitant]
     Active Substance: FLUOROURACIL
     Dosage: 1896-2000 MG
     Route: 041
     Dates: start: 20180301, end: 20190212
  10. FLUOROURACIL [Concomitant]
     Active Substance: FLUOROURACIL
     Dosage: 1908-1920MG
     Route: 041
     Dates: start: 20190316, end: 20190417
  11. FLUOROURACIL [Concomitant]
     Active Substance: FLUOROURACIL
     Dosage: 1860-1900 MG
     Route: 041
     Dates: start: 20190513, end: 20190729
  12. FLUOROURACIL [Concomitant]
     Active Substance: FLUOROURACIL
     Dosage: 1850- 3000MG
     Route: 041
     Dates: start: 20190829, end: 20200118
  13. FOLIC ACID [Concomitant]
     Active Substance: FOLIC ACID
     Indication: Colon cancer
     Dosage: UNK
     Dates: start: 20180301, end: 20190212
  14. FOLIC ACID [Concomitant]
     Active Substance: FOLIC ACID
     Dosage: 636-640MG
     Dates: start: 20190316, end: 20190417
  15. FOLIC ACID [Concomitant]
     Active Substance: FOLIC ACID
     Dosage: 620-630MG
     Dates: start: 20190513, end: 20190729
  16. FOLIC ACID [Concomitant]
     Active Substance: FOLIC ACID
     Dosage: 600 MG, UNK
     Dates: start: 20190829, end: 20200118

REACTIONS (16)
  - Thrombocytopenia [Unknown]
  - Xeroderma [Unknown]
  - Neuropathy peripheral [Unknown]
  - Alopecia [Unknown]
  - Anaemia [Unknown]
  - Pyrexia [Unknown]
  - Constipation [Unknown]
  - Palmar-plantar erythrodysaesthesia syndrome [Unknown]
  - Leukopenia [Unknown]
  - Stomatitis [Unknown]
  - Acne [Unknown]
  - Decreased appetite [Unknown]
  - Fatigue [Unknown]
  - Vomiting [Unknown]
  - Diarrhoea [Unknown]
  - Nausea [Unknown]
